FAERS Safety Report 6489630-3 (Version None)
Quarter: 2009Q4

REPORT INFORMATION
  Report Type: 
  Country: None (occurrence: None)
  Receive Date: 20091207
  Receipt Date: 20091123
  Transmission Date: 20100525
  Serious: Yes (Death, Hospitalization)
  Sender: FDA-Public Use
  Company Number: 2009AC000354

PATIENT
  Age: 85 Year
  Sex: Male

DRUGS (13)
  1. DIGOXIN [Suspect]
     Dosage: 0.125 MG; QD; PO
     Route: 048
  2. COUMADIN [Concomitant]
  3. VITAMIN K TAB [Concomitant]
  4. BETAPACE [Concomitant]
  5. LASIX [Concomitant]
  6. CARDIZEM [Concomitant]
  7. DETROL [Concomitant]
  8. FLOMAX [Concomitant]
  9. ASPIRIN [Concomitant]
  10. CARTIA XT [Concomitant]
  11. ALTACE [Concomitant]
  12. CIPRO [Concomitant]
  13. POTASSIUM [Concomitant]

REACTIONS (10)
  - BENIGN PROSTATIC HYPERPLASIA [None]
  - COAGULOPATHY [None]
  - DECREASED APPETITE [None]
  - DYSPNOEA [None]
  - ECONOMIC PROBLEM [None]
  - FATIGUE [None]
  - HAEMATURIA [None]
  - INTERNATIONAL NORMALISED RATIO INCREASED [None]
  - MULTIPLE INJURIES [None]
  - WEIGHT DECREASED [None]
